FAERS Safety Report 12382557 (Version 3)
Quarter: 2017Q1

REPORT INFORMATION
  Report Type: Spontaneous
  Country: IE (occurrence: IE)
  Receive Date: 20160518
  Receipt Date: 20170124
  Transmission Date: 20170428
  Serious: Yes (Hospitalization, Other)
  Sender: FDA-Public Use
  Company Number: IE-PFIZER INC-2016266100

PATIENT
  Age: 15 Year
  Sex: Female

DRUGS (3)
  1. METHOTREXATE SODIUM. [Suspect]
     Active Substance: METHOTREXATE SODIUM
     Dosage: UNK
     Route: 048
  2. METHOTREXATE SODIUM. [Suspect]
     Active Substance: METHOTREXATE SODIUM
     Dosage: 60 MG, UNK (FIVE PREVIOUS DOSES, EACH 12 MG)
     Route: 037
  3. METHOTREXATE SODIUM. [Suspect]
     Active Substance: METHOTREXATE SODIUM
     Indication: ACUTE LYMPHOCYTIC LEUKAEMIA
     Dosage: FIVE PREVIOUS HIGH-DOSE MXT
     Route: 037

REACTIONS (5)
  - Toxic encephalopathy [Unknown]
  - Apraxia [Recovering/Resolving]
  - Neurotoxicity [Unknown]
  - Hemiparesis [Recovering/Resolving]
  - Pancytopenia [Unknown]
